FAERS Safety Report 13125410 (Version 1)
Quarter: 2017Q1

REPORT INFORMATION
  Report Type: Spontaneous
  Country: US (occurrence: US)
  Receive Date: 20170118
  Receipt Date: 20170118
  Transmission Date: 20170428
  Serious: No
  Sender: FDA-Public Use
  Company Number: US-PFIZER INC-2017018175

PATIENT
  Sex: Female

DRUGS (2)
  1. COCONUT OIL [Suspect]
     Active Substance: COCONUT OIL
     Dosage: UNK
  2. ADVIL [Suspect]
     Active Substance: IBUPROFEN
     Indication: INSOMNIA
     Dosage: 2 DF, DAILY (BEDTIME)

REACTIONS (6)
  - Fear [Unknown]
  - Reaction to drug excipients [Unknown]
  - Frustration tolerance decreased [Unknown]
  - Drug ineffective for unapproved indication [Unknown]
  - Chest discomfort [Unknown]
  - Respiratory rate increased [Unknown]
